FAERS Safety Report 20031548 (Version 2)
Quarter: 2021Q4

REPORT INFORMATION
  Report Type: Report from Study
  Country: NL (occurrence: NL)
  Receive Date: 20211103
  Receipt Date: 20211221
  Transmission Date: 20220303
  Serious: Yes (Hospitalization, Other)
  Sender: FDA-Public Use
  Company Number: NL-ABBVIE-21K-114-4142428-00

PATIENT
  Age: 75 Year
  Sex: Female

DRUGS (3)
  1. CARBIDOPA\LEVODOPA [Suspect]
     Active Substance: CARBIDOPA\LEVODOPA
     Indication: Parkinson^s disease
     Route: 050
  2. CARBIDOPA\LEVODOPA [Suspect]
     Active Substance: CARBIDOPA\LEVODOPA
     Dosage: CD 5.2 ML/H ED 4.0 ML ND 5.5 ML CND 4.3 ML/H END 2.0 ML
     Route: 050
  3. CARBIDOPA\LEVODOPA [Suspect]
     Active Substance: CARBIDOPA\LEVODOPA
     Dosage: CD 5.4 ML/H ED 4.0 ML ND 5.5 ML CND 4.5 ML/H END 2.0 ML
     Route: 050

REACTIONS (4)
  - Unresponsive to stimuli [Unknown]
  - Aortic stenosis [Not Recovered/Not Resolved]
  - Tension [Not Recovered/Not Resolved]
  - Aortic valve calcification [Not Recovered/Not Resolved]

NARRATIVE: CASE EVENT DATE: 20210101
